FAERS Safety Report 24247007 (Version 3)
Quarter: 2025Q1

REPORT INFORMATION
  Report Type: Spontaneous
  Country: GB (occurrence: GB)
  Receive Date: 20240826
  Receipt Date: 20250215
  Transmission Date: 20250409
  Serious: Yes (Other)
  Sender: CELLTRION
  Company Number: GB-CELLTRION INC.-2024GB007036

PATIENT

DRUGS (1)
  1. YUFLYMA [Suspect]
     Active Substance: ADALIMUMAB-AATY
     Indication: Psoriasis
     Dosage: 40 MG, FOR EVERY 4 WEEKS FREQUENCY
     Route: 058
     Dates: start: 202403

REACTIONS (4)
  - Oral disorder [Unknown]
  - Psoriasis [Unknown]
  - Off label use [Unknown]
  - Intentional dose omission [Unknown]
